FAERS Safety Report 9301303 (Version 1)
Quarter: 2013Q2

REPORT INFORMATION
  Report Type: Spontaneous
  Country: US (occurrence: None)
  Receive Date: 20130520
  Receipt Date: 20130520
  Transmission Date: 20140414
  Serious: Yes (Other)
  Sender: FDA-Public Use
  Company Number: None

PATIENT
  Age: 60 Year
  Sex: Male
  Weight: 83 kg

DRUGS (2)
  1. RIBAVIRIN [Suspect]
     Indication: TENDON RUPTURE
     Route: 048
     Dates: start: 20121101
  2. BOCEPREVIR [Suspect]
     Dates: start: 20121129

REACTIONS (1)
  - Anaemia [None]
